FAERS Safety Report 5100060-9 (Version None)
Quarter: 2006Q3

REPORT INFORMATION
  Report Type: 
  Country: None (occurrence: None)
  Receive Date: 20060906
  Receipt Date: 20060824
  Transmission Date: 20061208
  Serious: Yes (Hospitalization)
  Sender: FDA-Public Use
  Company Number: GXKR2006US05195

PATIENT
  Age: 25 Year
  Sex: Female
  Weight: 120.2 kg

DRUGS (1)
  1. PROMETHAZINE [Suspect]
     Indication: SEDATION
     Dosage: 25 MG, ONCE/SINGLE, INTRA-ARTERIAL
     Route: 013
     Dates: start: 20030602, end: 20030602

REACTIONS (11)
  - BURNING SENSATION [None]
  - CHILLS [None]
  - CYANOSIS [None]
  - DRUG ADMINISTRATION ERROR [None]
  - FINGER AMPUTATION [None]
  - GANGRENE [None]
  - INCORRECT ROUTE OF DRUG ADMINISTRATION [None]
  - PAIN [None]
  - PYREXIA [None]
  - SKIN DISCOLOURATION [None]
  - SKIN GRAFT [None]
